FAERS Safety Report 17950422 (Version 2)
Quarter: 2020Q4

REPORT INFORMATION
  Report Type: Report from Study
  Country: US (occurrence: US)
  Receive Date: 20200626
  Receipt Date: 20201001
  Transmission Date: 20210113
  Serious: Yes (Other)
  Sender: FDA-Public Use
  Company Number: US-SHIRE-US202020371

PATIENT
  Sex: Female

DRUGS (1)
  1. HUMAN NORMAL IMMUNOGLOBULIN; LIQUID 20 [Suspect]
     Active Substance: HUMAN IMMUNOGLOBULIN G
     Indication: IMMUNODEFICIENCY COMMON VARIABLE
     Dosage: 15 GRAM, 1X/WEEK
     Route: 058

REACTIONS (7)
  - Haematemesis [Unknown]
  - Stress [Unknown]
  - Inability to afford medication [Recovered/Resolved]
  - Gastrointestinal haemorrhage [Unknown]
  - Polyp [Unknown]
  - Malignant hypertension [Unknown]
  - Myocardial infarction [Unknown]
